FAERS Safety Report 6964192-2 (Version None)
Quarter: 2010Q3

REPORT INFORMATION
  Report Type: 
  Country: None (occurrence: None)
  Receive Date: 20100903
  Receipt Date: 20100824
  Transmission Date: 20110219
  Serious: Yes (Hospitalization)
  Sender: FDA-Public Use
  Company Number: US-BIOGENIDEC-2005BI000530

PATIENT
  Age: 39 Year
  Sex: Female
  Weight: 90 kg

DRUGS (4)
  1. AVONEX [Suspect]
     Indication: MULTIPLE SCLEROSIS
     Route: 030
     Dates: start: 19960715, end: 20030101
  2. AVONEX [Suspect]
     Route: 030
     Dates: start: 20030101, end: 20030101
  3. AVONEX [Suspect]
     Route: 030
     Dates: start: 20030101, end: 20071201
  4. AVONEX [Suspect]
     Route: 030
     Dates: start: 20090802

REACTIONS (17)
  - BLOOD IMMUNOGLOBULIN G INCREASED [None]
  - FALL [None]
  - FATIGUE [None]
  - HYPOAESTHESIA [None]
  - IMPAIRED HEALING [None]
  - INSOMNIA [None]
  - MULTIPLE SCLEROSIS [None]
  - MULTIPLE SCLEROSIS RELAPSE [None]
  - MUSCLE SPASMS [None]
  - MUSCLE TIGHTNESS [None]
  - NERVE COMPRESSION [None]
  - RADICULITIS [None]
  - RADICULITIS LUMBOSACRAL [None]
  - SCOLIOSIS [None]
  - SENSORY DISTURBANCE [None]
  - SLEEP DISORDER [None]
  - SPINAL CORD DISORDER [None]
